FAERS Safety Report 22762911 (Version 8)
Quarter: 2024Q1

REPORT INFORMATION
  Report Type: Report from Study
  Country: US (occurrence: US)
  Receive Date: 20230728
  Receipt Date: 20240306
  Transmission Date: 20240410
  Serious: No
  Sender: FDA-Public Use
  Company Number: US-002147023-NVSC2023US164703

PATIENT
  Age: 32 Year
  Sex: Female

DRUGS (1)
  1. KESIMPTA [Suspect]
     Active Substance: OFATUMUMAB
     Indication: Relapsing multiple sclerosis
     Dosage: 20 MG, QMO
     Route: 058
     Dates: start: 20230317

REACTIONS (7)
  - Fatigue [Unknown]
  - Dermatitis allergic [Unknown]
  - Rash erythematous [Unknown]
  - Injection site pain [Unknown]
  - Therapeutic response shortened [Unknown]
  - Dermatitis [Unknown]
  - Stress [Unknown]

NARRATIVE: CASE EVENT DATE: 20230725
